FAERS Safety Report 12572022 (Version 1)
Quarter: 2016Q3

REPORT INFORMATION
  Report Type: Report from Study
  Country: PT (occurrence: PT)
  Receive Date: 20160719
  Receipt Date: 20160719
  Transmission Date: 20161109
  Serious: Yes (Other)
  Sender: FDA-Public Use
  Company Number: PHHY2016PT097615

PATIENT
  Age: 0 Day
  Sex: Female
  Weight: 2.9 kg

DRUGS (1)
  1. GILENYA [Suspect]
     Active Substance: FINGOLIMOD HYDROCHLORIDE
     Indication: FOETAL EXPOSURE DURING PREGNANCY
     Dosage: MATERNAL DOSE: 0.5 MG, QD
     Route: 064
     Dates: start: 20150109, end: 20150420

REACTIONS (1)
  - Premature baby [Unknown]

NARRATIVE: CASE EVENT DATE: 20151112
